FAERS Safety Report 8397191-7 (Version None)
Quarter: 2012Q2

REPORT INFORMATION
  Report Type: 
  Country: None (occurrence: None)
  Receive Date: 20120530
  Receipt Date: 20120521
  Transmission Date: 20120825
  Serious: Yes (Hospitalization)
  Sender: FDA-Public Use
  Company Number: US-MERCK-1205USA04291

PATIENT
  Age: 88 Year
  Sex: Female

DRUGS (3)
  1. VITAMIN D (UNSPECIFIED) [Concomitant]
     Route: 065
  2. IRON (UNSPECIFIED) [Concomitant]
     Route: 065
  3. FOSAMAX [Suspect]
     Route: 048
     Dates: end: 20100101

REACTIONS (3)
  - FALL [None]
  - LOWER LIMB FRACTURE [None]
  - TOOTH LOSS [None]
